FAERS Safety Report 24021592 (Version 3)
Quarter: 2024Q2

REPORT INFORMATION
  Report Type: Spontaneous
  Country: US (occurrence: US)
  Receive Date: 20240627
  Receipt Date: 20240627
  Transmission Date: 20240716
  Serious: No
  Sender: FDA-Public Use
  Company Number: US-ROCHE-3513732

PATIENT
  Age: 40 Year
  Sex: Female

DRUGS (2)
  1. VABYSMO [Suspect]
     Active Substance: FARICIMAB\FARICIMAB-SVOA
     Indication: Product used for unknown indication
     Dosage: RIGHT EYE: 15/AUG/2023, 15/SEP/2023, 13/OCT/2023, 12/DEC/2023 ?LEFT EYE: 28/AUG/2023, 25/SEP/2023, 0
     Route: 065
     Dates: start: 20230815
  2. EYLEA [Concomitant]
     Active Substance: AFLIBERCEPT
     Dosage: 06/JUN/2023 LEFT EYE
     Dates: start: 20230526

REACTIONS (3)
  - Vasculitis [Unknown]
  - Off label use [Unknown]
  - Iridocyclitis [Unknown]

NARRATIVE: CASE EVENT DATE: 20240201
